FAERS Safety Report 11898265 (Version 1)
Quarter: 2016Q1

REPORT INFORMATION
  Report Type: Spontaneous
  Country: GB (occurrence: GB)
  Receive Date: 20160108
  Receipt Date: 20160108
  Transmission Date: 20160526
  Serious: Yes (Hospitalization)
  Sender: FDA-Public Use
  Company Number: GB-WATSON-2016-00033

PATIENT
  Age: 87 Year
  Sex: Male

DRUGS (6)
  1. BICALUTAMIDE. [Concomitant]
     Active Substance: BICALUTAMIDE
     Indication: PRODUCT USED FOR UNKNOWN INDICATION
     Dosage: UNK, UNKNOWN
     Route: 065
  2. BISOPROLOL [Concomitant]
     Active Substance: BISOPROLOL
     Indication: PRODUCT USED FOR UNKNOWN INDICATION
     Dosage: UNK UNK, UNKNOWN (STOPPED AS THE PATIENT WAS DIAGNOSED WITH POSTURALHYPOTENSION DUE TO MEDICATION)
     Route: 065
  3. RAMIPRIL (UNKNOWN) [Suspect]
     Active Substance: RAMIPRIL
     Indication: HYPERTENSION
     Dosage: 10 MG, DAILY, (DOSE REDUCED TO 5MG)
     Route: 048
     Dates: end: 201106
  4. SIMVASTATIN. [Concomitant]
     Active Substance: SIMVASTATIN
     Indication: PRODUCT USED FOR UNKNOWN INDICATION
     Dosage: UNK, UNKNOWN
     Route: 065
  5. RAMIPRIL (UNKNOWN) [Suspect]
     Active Substance: RAMIPRIL
     Dosage: 5 MG, QPM (AT NIGHT)
     Route: 048
     Dates: start: 201106
  6. WARFARIN [Concomitant]
     Active Substance: WARFARIN
     Indication: PRODUCT USED FOR UNKNOWN INDICATION
     Dosage: UNK UNK, UNKNOWN (OMITTED UNTIL INR STABLE)
     Route: 065

REACTIONS (3)
  - International normalised ratio increased [Recovered/Resolved]
  - Loss of consciousness [Recovering/Resolving]
  - Syncope [Recovering/Resolving]

NARRATIVE: CASE EVENT DATE: 201105
